FAERS Safety Report 21956789 (Version 2)
Quarter: 2023Q1

REPORT INFORMATION
  Report Type: Spontaneous
  Country: HR (occurrence: HR)
  Receive Date: 20230206
  Receipt Date: 20230224
  Transmission Date: 20230418
  Serious: Yes (Other)
  Sender: FDA-Public Use
  Company Number: HR-BAYER-2023P007350

PATIENT
  Age: 62 Year
  Sex: Male

DRUGS (7)
  1. EYLEA [Suspect]
     Active Substance: AFLIBERCEPT
     Indication: Macular degeneration
     Dosage: TOTAL 18 DOSES,SOLUTION FOR INJECTION, STRENGTH: 40 MG/ML
     Dates: start: 2018, end: 2020
  2. EYLEA [Suspect]
     Active Substance: AFLIBERCEPT
     Dosage: UNK, SOLUTION FOR INJECTION, STRENGTH: 40 MG/ML
     Dates: start: 20200911, end: 20200911
  3. EYLEA [Suspect]
     Active Substance: AFLIBERCEPT
     Dosage: UNK, SOLUTION FOR INJECTION, STRENGTH: 40 MG/ML
     Dates: start: 20201016, end: 20201016
  4. EYLEA [Suspect]
     Active Substance: AFLIBERCEPT
     Dosage: UNK, SOLUTION FOR INJECTION, STRENGTH: 40 MG/ML
     Dates: start: 20201113, end: 20201113
  5. EYLEA [Suspect]
     Active Substance: AFLIBERCEPT
     Dosage: UNK, SOLUTION FOR INJECTION, STRENGTH: 40 MG/ML
     Dates: start: 20210203, end: 20210203
  6. EYLEA [Suspect]
     Active Substance: AFLIBERCEPT
     Dosage: UNK, SOLUTION FOR INJECTION, STRENGTH: 40 MG/ML
     Dates: start: 20210311, end: 20210311
  7. BROLUCIZUMAB [Concomitant]
     Active Substance: BROLUCIZUMAB
     Indication: Product used for unknown indication

REACTIONS (4)
  - Visual impairment [Not Recovered/Not Resolved]
  - Subretinal fluid [Not Recovered/Not Resolved]
  - Drug ineffective [Unknown]
  - Vision blurred [Recovering/Resolving]

NARRATIVE: CASE EVENT DATE: 20210101
